FAERS Safety Report 8195830-7 (Version None)
Quarter: 2012Q1

REPORT INFORMATION
  Report Type: 
  Country: None (occurrence: None)
  Receive Date: 20120308
  Receipt Date: 20120305
  Transmission Date: 20120608
  Serious: Yes (Death)
  Sender: FDA-Public Use
  Company Number: IL-PFIZER INC-2012035069

PATIENT
  Age: 81 Year
  Sex: Male

DRUGS (3)
  1. INSULIN GLULISINE [Concomitant]
     Indication: DIABETES MELLITUS
  2. DEPO-MEDROL [Suspect]
     Indication: ASPIRATION
     Dosage: 40 MG, SINGLE
     Route: 042
     Dates: start: 20120203, end: 20120203
  3. AMIKACIN [Concomitant]
     Route: 042

REACTIONS (3)
  - ASPIRATION [None]
  - INCORRECT ROUTE OF DRUG ADMINISTRATION [None]
  - WRONG DRUG ADMINISTERED [None]
